FAERS Safety Report 24160115 (Version 2)
Quarter: 2024Q3

REPORT INFORMATION
  Report Type: Spontaneous
  Country: US (occurrence: US)
  Receive Date: 20240801
  Receipt Date: 20240816
  Transmission Date: 20241016
  Serious: Yes (Hospitalization)
  Sender: TEVA
  Company Number: US-TEVA-VS-3225406

PATIENT
  Age: 60 Year
  Sex: Male

DRUGS (7)
  1. CIPROFLOXACIN [Suspect]
     Active Substance: CIPROFLOXACIN
     Indication: Salmonella bacteraemia
     Route: 048
  2. CIPROFLOXACIN [Suspect]
     Active Substance: CIPROFLOXACIN
     Indication: Salmonella bacteraemia
     Route: 048
  3. CIPROFLOXACIN [Suspect]
     Active Substance: CIPROFLOXACIN
     Indication: Salmonella bacteraemia
     Route: 048
  4. WARFARIN [Concomitant]
     Active Substance: WARFARIN
     Indication: Atrial fibrillation
     Route: 065
  5. ERTAPENEM [Concomitant]
     Active Substance: ERTAPENEM
     Indication: Salmonella bacteraemia
     Route: 065
  6. MEROPENEM [Concomitant]
     Active Substance: MEROPENEM
     Indication: Salmonella bacteraemia
     Route: 065
  7. CEFTRIAXONE [Concomitant]
     Active Substance: CEFTRIAXONE\CEFTRIAXONE SODIUM
     Indication: Salmonella bacteraemia
     Route: 065

REACTIONS (1)
  - Drug resistance [Unknown]
